FAERS Safety Report 14846384 (Version 1)
Quarter: 2018Q2

REPORT INFORMATION
  Report Type: Spontaneous
  Country: US (occurrence: US)
  Receive Date: 20180504
  Receipt Date: 20180504
  Transmission Date: 20180711
  Serious: No
  Sender: FDA-Public Use
  Company Number: US-TEVA-800879ACC

PATIENT
  Age: 21 Year
  Sex: Female

DRUGS (2)
  1. AVIANE [Suspect]
     Active Substance: ETHINYL ESTRADIOL\LEVONORGESTREL
     Indication: CONTRACEPTION
     Dosage: 0.10 MG/0.02 MG
     Dates: start: 201706
  2. AVIANE [Suspect]
     Active Substance: ETHINYL ESTRADIOL\LEVONORGESTREL
     Dosage: 0.10 MG/0.02 MG
     Dates: start: 201708

REACTIONS (1)
  - Panic attack [Not Recovered/Not Resolved]
